FAERS Safety Report 6159860-9 (Version None)
Quarter: 2009Q2

REPORT INFORMATION
  Report Type: 
  Country: None (occurrence: None)
  Receive Date: 20090420
  Receipt Date: 20090413
  Transmission Date: 20091009
  Serious: Yes (Hospitalization)
  Sender: FDA-Public Use
  Company Number: US-ASTRAZENECA-2009UW09327

PATIENT
  Age: 34220 Day
  Sex: Male
  Weight: 61.2 kg

DRUGS (8)
  1. PRILOSEC [Suspect]
     Indication: DYSPEPSIA
     Route: 048
  2. CARDIZEM [Concomitant]
  3. DIGOXIN [Concomitant]
  4. HYDROCHLOROTHIAZIDE [Concomitant]
  5. LOPRESSOR [Concomitant]
  6. POTASSIUM CHLORIDE [Concomitant]
  7. ARGINAID [Concomitant]
  8. COUMADIN [Concomitant]

REACTIONS (2)
  - ABDOMINAL PAIN [None]
  - ILL-DEFINED DISORDER [None]
